FAERS Safety Report 6792222-X (Version None)
Quarter: 2010Q2

REPORT INFORMATION
  Report Type: 
  Country: None (occurrence: None)
  Receive Date: 20100624
  Receipt Date: 20100615
  Transmission Date: 20101027
  Serious: Yes (Other)
  Sender: FDA-Public Use
  Company Number: CA-GENENTECH-300425

PATIENT
  Sex: Male
  Weight: 59 kg

DRUGS (6)
  1. RITUXIMAB [Suspect]
     Indication: RHEUMATOID ARTHRITIS
     Dosage: 1000 MG, DAYS 1+15
     Route: 042
     Dates: start: 20080722
  2. CELEBREX [Concomitant]
     Indication: DRUG USE FOR UNKNOWN INDICATION
     Dosage: UNK
  3. ARAVA [Concomitant]
     Indication: DRUG USE FOR UNKNOWN INDICATION
     Dosage: UNK
  4. TYLENOL [Concomitant]
     Indication: DRUG USE FOR UNKNOWN INDICATION
     Dosage: 650 MG, SINGLE
     Route: 048
     Dates: start: 20100615
  5. BENADRYL [Concomitant]
     Indication: DRUG USE FOR UNKNOWN INDICATION
     Dosage: 50 MG, SINGLE
     Dates: start: 20100615
  6. SOLU-MEDROL [Concomitant]
     Indication: DRUG USE FOR UNKNOWN INDICATION
     Dosage: 100 MG, SINGLE
     Route: 042
     Dates: start: 20100615

REACTIONS (2)
  - ASTHMA [None]
  - DYSPNOEA [None]
